FAERS Safety Report 18475558 (Version 2)
Quarter: 2021Q1

REPORT INFORMATION
  Report Type: Spontaneous
  Country: US (occurrence: US)
  Receive Date: 20201106
  Receipt Date: 20210104
  Transmission Date: 20210419
  Serious: Yes (Hospitalization)
  Sender: FDA-Public Use
  Company Number: US-TEVA-2020-US-1843918

PATIENT
  Age: 34 Year
  Sex: Female

DRUGS (1)
  1. PALIPERIDONE. [Suspect]
     Active Substance: PALIPERIDONE
     Indication: SCHIZOPHRENIA
     Route: 065

REACTIONS (2)
  - Eosinophilia [Recovered/Resolved]
  - Eosinophilic pleural effusion [Recovered/Resolved]
